FAERS Safety Report 21184149 (Version 1)
Quarter: 2022Q3

REPORT INFORMATION
  Report Type: Other
  Country: US (occurrence: None)
  Receive Date: 20220808
  Receipt Date: 20220808
  Transmission Date: 20221026
  Serious: Yes (Hospitalization)
  Sender: FDA-Public Use
  Company Number: US-ROCHE-3155509

PATIENT
  Age: 23 Year
  Sex: Female

DRUGS (8)
  1. RITUXIMAB [Suspect]
     Active Substance: RITUXIMAB
     Indication: Evans syndrome
     Dosage: ON POSTPARTUM DAYS 21 AND 28
     Route: 042
  2. DEXAMETHASONE [Suspect]
     Active Substance: DEXAMETHASONE
     Indication: Evans syndrome
     Dosage: FIRST AND SECOND COURSE
     Route: 048
  3. DEXAMETHASONE [Suspect]
     Active Substance: DEXAMETHASONE
     Dosage: THIRD COURSE
     Route: 048
  4. PREDNISONE [Suspect]
     Active Substance: PREDNISONE
     Indication: Evans syndrome
     Route: 048
  5. IRON DEXTRAN [Concomitant]
     Active Substance: IRON DEXTRAN
     Indication: Evans syndrome
     Route: 042
  6. FOLATE SODIUM [Concomitant]
     Active Substance: FOLATE SODIUM
     Indication: Evans syndrome
  7. VITAMIN B12 [Concomitant]
     Active Substance: CYANOCOBALAMIN
     Indication: Evans syndrome
  8. HEPARIN [Concomitant]
     Active Substance: HEPARIN SODIUM
     Indication: Pulmonary embolism

REACTIONS (1)
  - COVID-19 pneumonia [Unknown]
